FAERS Safety Report 25410770 (Version 1)
Quarter: 2025Q2

REPORT INFORMATION
  Report Type: Report from Study
  Country: CA (occurrence: CA)
  Receive Date: 20250609
  Receipt Date: 20250609
  Transmission Date: 20250716
  Serious: Yes (Hospitalization, Other)
  Sender: AUROBINDO
  Company Number: CA-AUROBINDO-AUR-APL-2022-004731

PATIENT
  Age: 29 Year
  Sex: Male

DRUGS (13)
  1. ARIPIPRAZOLE [Suspect]
     Active Substance: ARIPIPRAZOLE
     Indication: Autism spectrum disorder
     Dosage: 20 MILLIGRAM, ONCE A DAY
     Route: 048
  2. BENZTROPINE [Suspect]
     Active Substance: BENZTROPINE
     Indication: Autism spectrum disorder
     Dosage: 1 MILLIGRAM, TWO TIMES A DAY
     Route: 048
  3. ZUCLOPENTHIXOL [Suspect]
     Active Substance: ZUCLOPENTHIXOL
     Indication: Autism spectrum disorder
     Dosage: 10 MILLIGRAM, TWO TIMES A DAY
     Route: 048
  4. FLUVOXAMINE [Suspect]
     Active Substance: FLUVOXAMINE
     Indication: Autism spectrum disorder
     Route: 048
  5. LORAZEPAM [Suspect]
     Active Substance: LORAZEPAM
     Indication: Autism spectrum disorder
     Route: 065
  6. DIVALPROEX SODIUM [Suspect]
     Active Substance: DIVALPROEX SODIUM
     Indication: Autism spectrum disorder
     Dosage: 750 MILLIGRAM, TWO TIMES A DAY
     Route: 065
  7. ZOPICLONE [Suspect]
     Active Substance: ZOPICLONE
     Indication: Impulsive behaviour
     Dosage: 15 MILLIGRAM, FOUR TIMES/DAY
     Route: 065
  8. ZOPICLONE [Suspect]
     Active Substance: ZOPICLONE
     Indication: Aggression
  9. ZOPICLONE [Suspect]
     Active Substance: ZOPICLONE
     Indication: Impulsive behaviour
     Route: 065
  10. ZOPICLONE [Suspect]
     Active Substance: ZOPICLONE
     Indication: Aggression
  11. ZUCLOPENTHIXOL ACETATE [Suspect]
     Active Substance: ZUCLOPENTHIXOL ACETATE
     Indication: Autism spectrum disorder
     Dosage: 10 MILLIGRAM, TWO TIMES A DAY
     Route: 048
  12. .GAMMA.-AMINOBUTYRIC ACID [Concomitant]
     Active Substance: .GAMMA.-AMINOBUTYRIC ACID
     Indication: Autism spectrum disorder
     Dosage: 500 MILLIGRAM, 3 TIMES A DAY
     Route: 065
  13. LOXAPINE [Concomitant]
     Active Substance: LOXAPINE
     Indication: Autism spectrum disorder
     Route: 048

REACTIONS (2)
  - Drug ineffective [Unknown]
  - Off label use [Unknown]
